APPROVED DRUG PRODUCT: BINOSTO
Active Ingredient: ALENDRONATE SODIUM
Strength: EQ 70MG BASE
Dosage Form/Route: TABLET, EFFERVESCENT;ORAL
Application: N202344 | Product #001
Applicant: RADIUS HEALTH INC
Approved: Mar 12, 2012 | RLD: Yes | RS: Yes | Type: RX

PATENTS:
Patent 9592195 | Expires: Dec 5, 2031